FAERS Safety Report 10685597 (Version 2)
Quarter: 2014Q4

REPORT INFORMATION
  Report Type: Report from Study
  Country: FR (occurrence: FR)
  Receive Date: 20141231
  Receipt Date: 20141231
  Transmission Date: 20150529
  Serious: Yes (Hospitalization, Disabling, Other)
  Sender: FDA-Public Use
  Company Number: FR-JNJFOC-20140823325

PATIENT
  Sex: Female
  Weight: 81 kg

DRUGS (11)
  1. XARELTO [Suspect]
     Active Substance: RIVAROXABAN
     Indication: ATRIAL FIBRILLATION
     Route: 048
     Dates: start: 20131028, end: 20131112
  2. LEVOTHYROX [Concomitant]
     Active Substance: LEVOTHYROXINE
     Route: 065
  3. CARDENSIEL [Concomitant]
     Active Substance: BISOPROLOL FUMARATE
     Route: 065
  4. XARELTO [Suspect]
     Active Substance: RIVAROXABAN
     Indication: CEREBROVASCULAR ACCIDENT PROPHYLAXIS
     Route: 048
     Dates: start: 20131028, end: 20131112
  5. NEBIVOLOL [Concomitant]
     Active Substance: NEBIVOLOL
     Route: 065
     Dates: end: 20131028
  6. COVERSYL [Concomitant]
     Active Substance: PERINDOPRIL
     Route: 065
     Dates: start: 20131118
  7. DIGOXINE [Concomitant]
     Active Substance: DIGOXIN
     Route: 065
     Dates: start: 20131116
  8. XARELTO [Suspect]
     Active Substance: RIVAROXABAN
     Indication: CEREBROVASCULAR ACCIDENT PROPHYLAXIS
     Route: 048
     Dates: start: 20131028, end: 20131112
  9. PARACETAMOL [Concomitant]
     Active Substance: ACETAMINOPHEN
     Route: 065
     Dates: start: 20131116
  10. ZESTRIL [Concomitant]
     Active Substance: LISINOPRIL
     Route: 065
     Dates: end: 20131112
  11. PERFALGAN [Concomitant]
     Active Substance: ACETAMINOPHEN
     Route: 065
     Dates: start: 20131112, end: 20131115

REACTIONS (1)
  - Ischaemic stroke [Recovered/Resolved with Sequelae]

NARRATIVE: CASE EVENT DATE: 20131112
